FAERS Safety Report 9125960 (Version 1)
Quarter: 2013Q1

REPORT INFORMATION
  Report Type: Spontaneous
  Country: GB (occurrence: GB)
  Receive Date: 20130228
  Receipt Date: 20130228
  Transmission Date: 20140127
  Serious: Yes (Other)
  Sender: FDA-Public Use
  Company Number: GB-009507513-1302GBR012581

PATIENT
  Age: 58 Year
  Sex: Female
  Weight: 78.1 kg

DRUGS (2)
  1. COSOPT [Suspect]
     Indication: INTRAOCULAR PRESSURE INCREASED
     Dosage: 1 DROP, BID
     Route: 047
     Dates: start: 201211
  2. [COMPOSITION UNSPECIFIED] [Concomitant]

REACTIONS (7)
  - Dermatitis [Unknown]
  - Diplopia [Unknown]
  - Dry skin [Unknown]
  - Skin exfoliation [Unknown]
  - Pruritus [Unknown]
  - Erythema [Unknown]
  - Eyelid oedema [Unknown]
